FAERS Safety Report 7290608-0 (Version None)
Quarter: 2011Q1

REPORT INFORMATION
  Report Type: 
  Country: None (occurrence: None)
  Receive Date: 20110209
  Receipt Date: 20110209
  Transmission Date: 20110831
  Serious: Yes (Hospitalization)
  Sender: FDA-Public Use
  Company Number: None

PATIENT
  Age: 53 Year
  Sex: Male
  Weight: 69.7 kg

DRUGS (3)
  1. ACETAMINOPHEN/BUTALBITAL/CAFFEINE [Suspect]
     Indication: HEADACHE
     Dosage: 325/50/40 MG BID PO
     Route: 048
     Dates: end: 20101119
  2. ACETAMINOPHEN/BUTALBITAL/CAFFEINE [Suspect]
     Indication: PAIN
     Dosage: 325/50/40 MG BID PO
     Route: 048
     Dates: end: 20101119
  3. METHADONE [Suspect]
     Dates: end: 20101103

REACTIONS (5)
  - SEDATION [None]
  - UNRESPONSIVE TO STIMULI [None]
  - OVERDOSE [None]
  - CONFUSIONAL STATE [None]
  - SELF-MEDICATION [None]
